FAERS Safety Report 4556259-3 (Version None)
Quarter: 2005Q1

REPORT INFORMATION
  Report Type: 
  Country: None (occurrence: None)
  Receive Date: 20050103
  Receipt Date: 20040818
  Transmission Date: 20050727
  Serious: Yes (Other)
  Sender: FDA-Public Use
  Company Number: 2004UW17517

PATIENT
  Age: 63 Year
  Sex: Female
  Weight: 62.1428 kg

DRUGS (8)
  1. CRESTOR [Suspect]
     Indication: HYPERCHOLESTEROLAEMIA
     Dosage: 20 MG PO
     Route: 048
  2. ATENOLOL [Concomitant]
  3. IMDUR [Concomitant]
  4. PLAVIX [Concomitant]
  5. HYDROCHLOROTHIAZIDE [Concomitant]
  6. ZOLOFT [Concomitant]
  7. NITROGLYCERIN [Concomitant]
  8. ASPIRIN [Concomitant]

REACTIONS (1)
  - HAIR COLOUR CHANGES [None]
